FAERS Safety Report 11192499 (Version 4)
Quarter: 2015Q3

REPORT INFORMATION
  Report Type: Spontaneous
  Country: US (occurrence: None)
  Receive Date: 20150612
  Receipt Date: 20150821
  Transmission Date: 20151125
  Serious: Yes (Other)
  Sender: FDA-Public Use
  Company Number: US-001955

PATIENT
  Age: 52 Year
  Sex: Female
  Weight: 191 kg

DRUGS (9)
  1. RADIOACTIVE IODINE SOLUTION [Concomitant]
     Active Substance: SODIUM IODIDE I-131
  2. CITRACAL [Concomitant]
     Active Substance: CALCIUM CITRATE
  3. SYNTHROID [Concomitant]
     Active Substance: LEVOTHYROXINE SODIUM
  4. CALCIUM CITRATE [Concomitant]
     Active Substance: CALCIUM CITRATE
  5. PARATHYROID HORMONE [Suspect]
     Active Substance: PARATHYROID HORMONE
     Indication: HYPOPARATHYROIDISM
     Dosage: (25 ?G, 2 TO 3 TIMES PER DAY SUBCUTANEOUS)
     Route: 058
     Dates: start: 2015
  6. DIETARY SUPPLEMENT [Concomitant]
     Active Substance: DIETARY SUPPLEMENT
  7. CALCIUM [Concomitant]
     Active Substance: CALCIUM
  8. INDAPAMIDE. [Concomitant]
     Active Substance: INDAPAMIDE
  9. CALCITRIOL. [Concomitant]
     Active Substance: CALCITRIOL

REACTIONS (12)
  - Injection site mass [None]
  - Fatigue [None]
  - Injection site haemorrhage [None]
  - Papillary thyroid cancer [None]
  - Blood calcium increased [None]
  - Thirst [None]
  - Headache [None]
  - Injection site bruising [None]
  - Product quality issue [None]
  - Hypercalcaemia [None]
  - Chromaturia [None]
  - Paraesthesia [None]

NARRATIVE: CASE EVENT DATE: 20150426
